FAERS Safety Report 4467655-7 (Version None)
Quarter: 2004Q4

REPORT INFORMATION
  Report Type: 
  Country: None (occurrence: None)
  Receive Date: 20041004
  Receipt Date: 20041004
  Transmission Date: 20050328
  Serious: Yes (Other)
  Sender: FDA-Public Use
  Company Number: None

PATIENT
  Age: 51 Year
  Sex: Male
  Weight: 81.6475 kg

DRUGS (1)
  1. VIOXX [Suspect]
     Dosage: ONE A DAY
     Dates: start: 20011001, end: 20040101

REACTIONS (1)
  - CHEST PAIN [None]
